FAERS Safety Report 6532425-2 (Version None)
Quarter: 2010Q1

REPORT INFORMATION
  Report Type: 
  Country: None (occurrence: None)
  Receive Date: 20100108
  Receipt Date: 20091230
  Transmission Date: 20100710
  Serious: Yes (Hospitalization, Other)
  Sender: FDA-Public Use
  Company Number: US-ELI_LILLY_AND_COMPANY-US200911004588

PATIENT
  Sex: Male
  Weight: 84.535 kg

DRUGS (10)
  1. BYETTA [Suspect]
     Indication: DIABETES MELLITUS
     Dosage: 5 UG, 2/D
     Route: 058
     Dates: start: 20090814, end: 20091022
  2. BYETTA [Suspect]
     Dosage: 10 MG, 2/D
     Dates: start: 20091022, end: 20091103
  3. CAPTOPRIL [Concomitant]
     Dosage: 50 MG, DAILY (1/D)
     Route: 048
  4. CARDIZEM CD [Concomitant]
     Dosage: 180 MG, DAILY (1/D)
     Route: 048
  5. COUMADIN [Concomitant]
     Dosage: 10 MG, DAILY (1/D)
     Route: 048
  6. GLUCOPHAGE [Concomitant]
     Dosage: 500 MG, 2/D
     Route: 048
  7. LIPITOR [Concomitant]
     Indication: HYPERCHOLESTEROLAEMIA
     Dosage: 80 MG, DAILY (1/D)
     Route: 048
     Dates: start: 20090628
  8. PLAVIX [Concomitant]
     Dosage: 75 MG, DAILY (1/D)
     Route: 048
  9. FOLBEE [Concomitant]
     Dosage: UNK, DAILY (1/D)
     Route: 048
  10. NITROGLYCERIN [Concomitant]
     Indication: ANGINA PECTORIS
     Dosage: 0.4 MG, AS NEEDED

REACTIONS (4)
  - HYPERAMYLASAEMIA [None]
  - LIPASE INCREASED [None]
  - NON-CARDIAC CHEST PAIN [None]
  - WEIGHT DECREASED [None]
